FAERS Safety Report 5959881-2 (Version None)
Quarter: 2008Q4

REPORT INFORMATION
  Report Type: 
  Country: None (occurrence: None)
  Receive Date: 20081120
  Receipt Date: 20081113
  Transmission Date: 20090506
  Serious: Yes (Other)
  Sender: FDA-Public Use
  Company Number: JP-BAYER-200811827BYL

PATIENT
  Age: 69 Year
  Sex: Male
  Weight: 61 kg

DRUGS (7)
  1. NEXAVAR [Suspect]
     Indication: RENAL CELL CARCINOMA STAGE III
     Dosage: UNIT DOSE: 200 MG
     Route: 048
     Dates: start: 20080324, end: 20080618
  2. NEXAVAR [Suspect]
     Dosage: UNIT DOSE: 200 MG
     Route: 048
     Dates: start: 20080619, end: 20080629
  3. NEXAVAR [Suspect]
     Dosage: UNIT DOSE: 200 MG
     Route: 048
     Dates: start: 20080901, end: 20080904
  4. NEXAVAR [Suspect]
     Dosage: UNIT DOSE: 200 MG
     Route: 048
     Dates: start: 20080722, end: 20080815
  5. NEXAVAR [Suspect]
     Dosage: UNIT DOSE: 200 MG
     Route: 048
     Dates: start: 20080707, end: 20080721
  6. PROHEPARUM [Concomitant]
     Route: 048
     Dates: start: 20080523, end: 20080903
  7. URSO 250 [Concomitant]
     Route: 048
     Dates: start: 20080523, end: 20080903

REACTIONS (7)
  - ALOPECIA [None]
  - BACK PAIN [None]
  - DIARRHOEA [None]
  - DRY SKIN [None]
  - HEPATIC FUNCTION ABNORMAL [None]
  - HYPERTENSION [None]
  - PALMAR-PLANTAR ERYTHRODYSAESTHESIA SYNDROME [None]
